FAERS Safety Report 12745071 (Version 1)
Quarter: 2016Q3

REPORT INFORMATION
  Report Type: Spontaneous
  Country: FR (occurrence: FR)
  Receive Date: 20160915
  Receipt Date: 20160915
  Transmission Date: 20161109
  Serious: Yes (Life-Threatening, Hospitalization)
  Sender: FDA-Public Use
  Company Number: FR-ACCORD-043935

PATIENT
  Age: 71 Year
  Sex: Female

DRUGS (2)
  1. CISPLATIN ACCORD [Suspect]
     Active Substance: CISPLATIN
     Indication: LUNG CARCINOMA CELL TYPE UNSPECIFIED STAGE II
     Route: 042
     Dates: start: 20160719, end: 20160720
  2. NAVELBINE [Suspect]
     Active Substance: VINORELBINE TARTRATE
     Indication: LUNG CARCINOMA CELL TYPE UNSPECIFIED STAGE II
     Route: 065
     Dates: start: 20160719, end: 20160730

REACTIONS (8)
  - Vomiting [Unknown]
  - Weight decreased [Unknown]
  - Neutropenia [Unknown]
  - Diarrhoea [Unknown]
  - Decreased appetite [Unknown]
  - Arterial thrombosis [Recovered/Resolved with Sequelae]
  - Intestinal infarction [Recovered/Resolved with Sequelae]
  - Nausea [Unknown]

NARRATIVE: CASE EVENT DATE: 20160730
